FAERS Safety Report 19725926 (Version 1)
Quarter: 2021Q3

REPORT INFORMATION
  Report Type: Spontaneous
  Country: US (occurrence: US)
  Receive Date: 20210819
  Receipt Date: 20210819
  Transmission Date: 20211014
  Serious: No
  Sender: FDA-Public Use
  Company Number: US-MANNKIND CORPORATION-2021MK000086

PATIENT
  Age: 71 Year
  Sex: Female
  Weight: 71.73 kg

DRUGS (4)
  1. AFREZZA [Suspect]
     Active Substance: INSULIN HUMAN
     Indication: PRODUCT USED FOR UNKNOWN INDICATION
     Dates: start: 20210430
  2. AFREZZA [Suspect]
     Active Substance: INSULIN HUMAN
     Dates: start: 20210430
  3. AFREZZA [Suspect]
     Active Substance: INSULIN HUMAN
     Dates: start: 20210430
  4. NOVOLOG [Concomitant]
     Active Substance: INSULIN ASPART
     Indication: PRODUCT USED FOR UNKNOWN INDICATION

REACTIONS (3)
  - Therapy interrupted [Unknown]
  - Cough [Unknown]
  - Product label confusion [Unknown]

NARRATIVE: CASE EVENT DATE: 20210607
